FAERS Safety Report 9217040 (Version 3)
Quarter: 2013Q2

REPORT INFORMATION
  Report Type: Spontaneous
  Country: DE (occurrence: DE)
  Receive Date: 20130408
  Receipt Date: 20130627
  Transmission Date: 20140414
  Serious: Yes (Hospitalization, Other)
  Sender: FDA-Public Use
  Company Number: DE-ELI_LILLY_AND_COMPANY-DE201304000827

PATIENT
  Sex: Male

DRUGS (6)
  1. EFIENT [Suspect]
     Indication: STENT PLACEMENT
     Dosage: 10 MG, UNK
     Route: 048
     Dates: start: 20120302, end: 20130223
  2. HEPARIN [Concomitant]
     Route: 058
  3. ASS [Concomitant]
     Dosage: 100 MG, QD
  4. PANTAZOL [Concomitant]
     Dosage: 20 MG, QD
  5. TARGIN [Concomitant]
  6. NEBILET [Concomitant]
     Dosage: 2.5 MG, QD

REACTIONS (6)
  - Inguinal hernia [Recovered/Resolved]
  - Post procedural haemorrhage [Recovered/Resolved]
  - Abscess [Not Recovered/Not Resolved]
  - Haematoma [Unknown]
  - Pyrexia [Not Recovered/Not Resolved]
  - Impaired healing [Not Recovered/Not Resolved]
